FAERS Safety Report 9194115 (Version 1)
Quarter: 2013Q1

REPORT INFORMATION
  Report Type: Spontaneous
  Country: US (occurrence: US)
  Receive Date: 20130327
  Receipt Date: 20130327
  Transmission Date: 20140127
  Serious: Yes (Hospitalization, Other)
  Sender: FDA-Public Use
  Company Number: US-ELI_LILLY_AND_COMPANY-US201303007831

PATIENT
  Sex: Male

DRUGS (2)
  1. HUMALOG LISPRO [Suspect]
     Route: 058
  2. NOVOLOG [Concomitant]

REACTIONS (4)
  - Blood glucose increased [Recovered/Resolved]
  - Myocardial infarction [Unknown]
  - Vomiting [Unknown]
  - Wrong drug administered [Unknown]
